FAERS Safety Report 5513418-0 (Version None)
Quarter: 2007Q4

REPORT INFORMATION
  Report Type: 
  Country: None (occurrence: None)
  Receive Date: 20071112
  Receipt Date: 20071101
  Transmission Date: 20080405
  Serious: Yes (Hospitalization)
  Sender: FDA-Public Use
  Company Number: US-PFIZER INC-2007086256

PATIENT
  Sex: Male
  Weight: 77.1 kg

DRUGS (12)
  1. PREDNISONE [Suspect]
     Indication: PROSTATE CANCER METASTATIC
     Route: 048
     Dates: start: 20061109, end: 20070621
  2. PREDNISONE [Suspect]
     Route: 048
     Dates: start: 20070621, end: 20070719
  3. PREDNISONE [Suspect]
     Route: 048
     Dates: start: 20070719, end: 20070916
  4. DOCETAXEL [Suspect]
     Indication: PROSTATE CANCER METASTATIC
     Route: 042
     Dates: start: 20061109, end: 20070131
  5. DOCETAXEL [Suspect]
     Route: 042
     Dates: start: 20070201, end: 20070620
  6. MULTIVIT [Concomitant]
     Indication: MEDICAL DIET
     Dosage: FREQ:ONE DAILY
     Route: 048
  7. ALL OTHER THERAPEUTIC PRODUCTS [Concomitant]
     Indication: CONSTIPATION
     Dosage: TEXT:1-2 PILLS-FREQ:DAILY PRN
     Route: 048
  8. IBUPROFEN [Concomitant]
     Indication: PAIN
     Route: 048
     Dates: start: 20070817
  9. ZOLPIDEM TARTRATE [Concomitant]
     Indication: INSOMNIA
     Dosage: FREQ:NIGHTLY
     Route: 048
     Dates: start: 20060801
  10. TUMS [Concomitant]
     Indication: DYSPEPSIA
     Dosage: FREQ:PRN
     Route: 048
  11. ROLAIDS [Concomitant]
     Indication: DYSPEPSIA
     Dosage: FREQ:PRN
     Route: 048
  12. CLARITIN [Concomitant]
     Indication: SEASONAL ALLERGY
     Dosage: FREQ:DAILY
     Route: 048
     Dates: start: 19970501

REACTIONS (1)
  - SYNCOPE [None]
